FAERS Safety Report 10146343 (Version 1)
Quarter: 2014Q2

REPORT INFORMATION
  Report Type: Spontaneous
  Country: US (occurrence: None)
  Receive Date: 20140430
  Receipt Date: 20140430
  Transmission Date: 20141212
  Serious: Yes (Disabling)
  Sender: FDA-Public Use
  Company Number: None

PATIENT
  Age: 45 Year
  Sex: Male
  Weight: 81.65 kg

DRUGS (1)
  1. ALBUTEROL SULFATE [Suspect]
     Indication: SINUSITIS
     Dates: start: 20140402, end: 20140402

REACTIONS (3)
  - Convulsion [None]
  - Throat irritation [None]
  - Dysphonia [None]
